FAERS Safety Report 8065123-7 (Version None)
Quarter: 2012Q1

REPORT INFORMATION
  Report Type: 
  Country: None (occurrence: None)
  Receive Date: 20120117
  Receipt Date: 20120105
  Transmission Date: 20120608
  Serious: Yes (Other)
  Sender: FDA-Public Use
  Company Number: 12-011

PATIENT
  Age: 72 Year
  Sex: Male
  Weight: 98 kg

DRUGS (14)
  1. DIOVAN HCT [Concomitant]
  2. TIZANIDINE HYDROCHLORIDE [Concomitant]
  3. ALISKIREN [Concomitant]
  4. PLAVIX [Concomitant]
  5. MELATONIN [Concomitant]
  6. GLIMEPIRIDE [Concomitant]
  7. ASPIRIN [Concomitant]
  8. GABAPENTIN [Concomitant]
  9. AMLODIPINE [Concomitant]
  10. REQUIP (ROPINIROL HYDROCHLORIDE) [Concomitant]
  11. ALEVE (CAPLET) [Suspect]
     Indication: SLEEP DISORDER THERAPY
     Dosage: 1DF/QD/ORAL
     Route: 048
  12. DOXAZOSIN [Concomitant]
  13. LOVASTATIN [Concomitant]
  14. FUROSEMIDE [Concomitant]

REACTIONS (1)
  - BLOOD PRESSURE INCREASED [None]
